FAERS Safety Report 24941913 (Version 2)
Quarter: 2025Q2

REPORT INFORMATION
  Report Type: Spontaneous
  Country: IN (occurrence: IN)
  Receive Date: 20250207
  Receipt Date: 20250409
  Transmission Date: 20250716
  Serious: Yes (Death, Hospitalization)
  Sender: IPSEN
  Company Number: IN-I.R.I.S.-S25001395

PATIENT
  Age: 65 Year
  Sex: Male

DRUGS (1)
  1. ONIVYDE [Suspect]
     Active Substance: IRINOTECAN HYDROCHLORIDE
     Indication: Product used for unknown indication
     Route: 065

REACTIONS (4)
  - Death [Fatal]
  - Asthenia [Unknown]
  - Hypophagia [Unknown]
  - Diarrhoea [Unknown]

NARRATIVE: CASE EVENT DATE: 20250131
